FAERS Safety Report 5783094-0 (Version None)
Quarter: 2008Q2

REPORT INFORMATION
  Report Type: 
  Country: None (occurrence: None)
  Receive Date: 20080619
  Receipt Date: 20080619
  Transmission Date: 20081010
  Serious: Yes (Other)
  Sender: FDA-Public Use
  Company Number: None

PATIENT
  Age: 78 Year
  Sex: Male
  Weight: 90.7194 kg

DRUGS (2)
  1. DIGITEK 0.125 MG MYLAN BERT [Suspect]
     Indication: CARDIAC FAILURE CONGESTIVE
     Dosage: 1 TABLET DAILY PO
     Route: 048
     Dates: start: 20080327, end: 20080604
  2. DIGITEK 0.125 MG MYLAN BERT [Suspect]
     Indication: CORONARY ARTERY DISEASE
     Dosage: 1 TABLET DAILY PO
     Route: 048
     Dates: start: 20080327, end: 20080604

REACTIONS (9)
  - DECREASED APPETITE [None]
  - FATIGUE [None]
  - JOINT SWELLING [None]
  - OEDEMA PERIPHERAL [None]
  - PAIN [None]
  - PHARMACEUTICAL PRODUCT COMPLAINT [None]
  - PRURITUS [None]
  - PYREXIA [None]
  - THIRST [None]
